FAERS Safety Report 23787955 (Version 1)
Quarter: 2024Q2

REPORT INFORMATION
  Report Type: Spontaneous
  Country: US (occurrence: US)
  Receive Date: 20240426
  Receipt Date: 20240426
  Transmission Date: 20240716
  Serious: No
  Sender: FDA-Public Use
  Company Number: US-BRISTOL-MYERS SQUIBB COMPANY-2024-059869

PATIENT
  Age: 57 Year
  Sex: Male
  Weight: 55.5 kg

DRUGS (4)
  1. OPDIVO [Suspect]
     Active Substance: NIVOLUMAB
     Indication: Bronchial neoplasm
     Dosage: STRENGTH: OPDIVO 240MG AND 120MG
     Route: 042
     Dates: start: 20240301
  2. YERVOY [Suspect]
     Active Substance: IPILIMUMAB
     Indication: Bronchial neoplasm
     Route: 042
  3. ALIMTA [Concomitant]
     Active Substance: PEMETREXED DISODIUM
     Indication: Product used for unknown indication
  4. CARBOPLATIN [Concomitant]
     Active Substance: CARBOPLATIN
     Indication: Product used for unknown indication

REACTIONS (4)
  - Nausea [Recovering/Resolving]
  - Dyspnoea [Recovering/Resolving]
  - Chills [Recovered/Resolved]
  - Off label use [Unknown]

NARRATIVE: CASE EVENT DATE: 20240412
